FAERS Safety Report 5228997-0 (Version None)
Quarter: 2007Q1

REPORT INFORMATION
  Report Type: 
  Country: None (occurrence: None)
  Receive Date: 20070205
  Receipt Date: 20070122
  Transmission Date: 20070707
  Serious: Yes (Hospitalization)
  Sender: FDA-Public Use
  Company Number: US-ELI_LILLY_AND_COMPANY-US200701004384

PATIENT
  Sex: Female

DRUGS (1)
  1. CYMBALTA [Suspect]
     Indication: DEPRESSION
     Dosage: UNK MG, UNK
     Dates: end: 20070101

REACTIONS (3)
  - HEPATIC ENZYME INCREASED [None]
  - LIVER DISORDER [None]
  - PANCREATITIS [None]
